FAERS Safety Report 6469291-X (Version None)
Quarter: 2009Q4

REPORT INFORMATION
  Report Type: 
  Country: None (occurrence: None)
  Receive Date: 20091203
  Receipt Date: 20071105
  Transmission Date: 20100525
  Serious: Yes (Hospitalization)
  Sender: FDA-Public Use
  Company Number: US-ELI_LILLY_AND_COMPANY-US200708000107

PATIENT
  Sex: Female
  Weight: 63.492 kg

DRUGS (4)
  1. ZYPREXA [Suspect]
     Indication: ABDOMINAL PAIN UPPER
     Dosage: 5 MG, UNK
     Dates: start: 20030613, end: 20060101
  2. XANAX [Concomitant]
  3. IMIPRAMINE [Concomitant]
  4. PROTONIX [Concomitant]

REACTIONS (4)
  - AGORAPHOBIA [None]
  - BLOOD GLUCOSE DECREASED [None]
  - DIABETES MELLITUS [None]
  - PANIC ATTACK [None]
